FAERS Safety Report 8847982 (Version 2)
Quarter: 2013Q3

REPORT INFORMATION
  Report Type: Report from Study
  Country: FR (occurrence: FR)
  Receive Date: 20121018
  Receipt Date: 20130801
  Transmission Date: 20140515
  Serious: Yes (Death, Hospitalization)
  Sender: FDA-Public Use
  Company Number: FR-CELGENEUS-056-50794-12101108

PATIENT
  Age: 76 Year
  Sex: Male

DRUGS (2)
  1. VIDAZA [Suspect]
     Indication: MYELODYSPLASTIC SYNDROME
     Dosage: 150 MILLIGRAM
     Route: 058
     Dates: start: 20120909, end: 20120918
  2. DEPAKIN [Suspect]
     Indication: MYELODYSPLASTIC SYNDROME
     Dosage: 3 GRAM
     Route: 048
     Dates: start: 20120909, end: 20120918

REACTIONS (1)
  - Supraventricular tachycardia [Fatal]
